FAERS Safety Report 20004438 (Version 1)
Quarter: 2021Q4

REPORT INFORMATION
  Report Type: Spontaneous
  Country: FR (occurrence: FR)
  Receive Date: 20211027
  Receipt Date: 20211027
  Transmission Date: 20220304
  Serious: Yes (Other)
  Sender: FDA-Public Use
  Company Number: FR-SA-SAC20211014000618

PATIENT
  Sex: Female

DRUGS (2)
  1. AERIUS (DESLORATADINE) [Suspect]
     Active Substance: DESLORATADINE
     Indication: Swollen tongue
     Dosage: 5 MG
     Dates: start: 20210929
  2. TIAPROFENIC ACID [Suspect]
     Active Substance: TIAPROFENIC ACID
     Dosage: UNK, UNK

REACTIONS (10)
  - Hypersensitivity [Unknown]
  - Fatigue [Not Recovered/Not Resolved]
  - Alcohol use [Unknown]
  - Swollen tongue [Recovered/Resolved]
  - Angina pectoris [Unknown]
  - Dyspepsia [Unknown]
  - Dry mouth [Unknown]
  - Expired product administered [Unknown]
  - Headache [Recovered/Resolved]
  - Oropharyngeal pain [Unknown]

NARRATIVE: CASE EVENT DATE: 20170101
